FAERS Safety Report 6258721-4 (Version None)
Quarter: 2009Q3

REPORT INFORMATION
  Report Type: 
  Country: None (occurrence: None)
  Receive Date: 20090707
  Receipt Date: 20090702
  Transmission Date: 20100115
  Serious: Yes (Hospitalization)
  Sender: FDA-Public Use
  Company Number: B0557024A

PATIENT
  Sex: Female

DRUGS (5)
  1. KIVEXA [Suspect]
     Indication: HIV INFECTION
     Dosage: 1TAB PER DAY
     Route: 048
     Dates: start: 20080717
  2. NORVIR [Suspect]
     Indication: HIV INFECTION
     Dosage: 2UNIT PER DAY
     Route: 048
     Dates: start: 20080717
  3. INVIRASE [Suspect]
     Indication: HIV INFECTION
     Dosage: 2UNIT PER DAY
     Route: 048
     Dates: start: 20080717, end: 20081122
  4. TRIZIVIR [Concomitant]
     Indication: HIV INFECTION
     Dates: end: 20080717
  5. VIREAD [Concomitant]
     Route: 065
     Dates: end: 20080717

REACTIONS (6)
  - CHOLESTASIS OF PREGNANCY [None]
  - DRUG EXPOSURE DURING PREGNANCY [None]
  - FATIGUE [None]
  - HEPATOCELLULAR INJURY [None]
  - LIVE BIRTH [None]
  - PRURITUS [None]
